FAERS Safety Report 25154333 (Version 3)
Quarter: 2025Q2

REPORT INFORMATION
  Report Type: Spontaneous
  Country: US (occurrence: US)
  Receive Date: 20250403
  Receipt Date: 20250506
  Transmission Date: 20250716
  Serious: No
  Sender: Haleon PLC
  Company Number: US-HALEON-2236419

PATIENT
  Sex: Male

DRUGS (2)
  1. FLONASE SENSIMIST ALLERGY RELIEF [Suspect]
     Active Substance: FLUTICASONE FUROATE
     Indication: Rhinorrhoea
     Dates: start: 20250328, end: 20250402
  2. FLONASE SENSIMIST ALLERGY RELIEF [Suspect]
     Active Substance: FLUTICASONE FUROATE
     Indication: Nasal congestion

REACTIONS (4)
  - Toothache [Unknown]
  - Product delivery mechanism issue [Unknown]
  - Incorrect dose administered [Unknown]
  - Drug ineffective [Unknown]
